FAERS Safety Report 5421467-6 (Version None)
Quarter: 2007Q3

REPORT INFORMATION
  Report Type: 
  Country: None (occurrence: None)
  Receive Date: 20070817
  Receipt Date: 20070808
  Transmission Date: 20080115
  Serious: Yes (Other)
  Sender: FDA-Public Use
  Company Number: S07-USA-03397-01

PATIENT
  Age: 47 Year
  Sex: Female

DRUGS (6)
  1. CELEXA [Suspect]
     Indication: DEPRESSION
     Dosage: 40 MG QD PO
     Route: 048
     Dates: start: 20070507
  2. CELEXA [Suspect]
     Indication: DEPRESSION
     Dosage: 20 MG QD PO
     Route: 048
     Dates: start: 20070326, end: 20070506
  3. LISINOPRIL [Concomitant]
  4. XANAX [Concomitant]
  5. FLONASE [Concomitant]
  6. ALLEGRA [Concomitant]

REACTIONS (1)
  - CORNEAL OEDEMA [None]
